FAERS Safety Report 5768152-9 (Version None)
Quarter: 2008Q2

REPORT INFORMATION
  Report Type: 
  Country: None (occurrence: None)
  Receive Date: 20080609
  Receipt Date: 20080528
  Transmission Date: 20081010
  Serious: Yes (Hospitalization)
  Sender: FDA-Public Use
  Company Number: 2008-01896

PATIENT
  Age: 68 Year
  Sex: Male
  Weight: 77 kg

DRUGS (5)
  1. VELCADE [Suspect]
     Indication: MULTIPLE MYELOMA
     Dosage: 1.3 MG/M2, INTRAVENOUS; 1.1 MG/M2
     Route: 042
     Dates: start: 20080311, end: 20080321
  2. VELCADE [Suspect]
     Indication: MULTIPLE MYELOMA
     Dosage: 1.3 MG/M2, INTRAVENOUS; 1.1 MG/M2
     Route: 042
     Dates: start: 20080506, end: 20080513
  3. DEXAMETHASONE TAB [Concomitant]
  4. ACETYLSALICYLIC ACID SRT [Concomitant]
  5. TELMISARTAN (TELMISARTAN) [Concomitant]

REACTIONS (4)
  - HERPES ZOSTER [None]
  - HYPOTENSION [None]
  - INFECTION [None]
  - THROMBOCYTOPENIA [None]
